FAERS Safety Report 5531639-8 (Version None)
Quarter: 2007Q4

REPORT INFORMATION
  Report Type: 
  Country: None (occurrence: None)
  Receive Date: 20071203
  Receipt Date: 20071119
  Transmission Date: 20080405
  Serious: Yes (Other)
  Sender: FDA-Public Use
  Company Number: FR-AMGEN-UK253354

PATIENT
  Age: 40 Year
  Sex: Male

DRUGS (6)
  1. NEUPOGEN [Suspect]
     Indication: CHEMOTHERAPY
     Route: 058
     Dates: start: 20071001
  2. OXCARBAMAZEPINE [Concomitant]
  3. LAMICTAL [Concomitant]
  4. VOGALENE [Concomitant]
  5. ZOPHREN [Concomitant]
  6. SOLUPRED [Concomitant]

REACTIONS (1)
  - CONVULSION [None]
